FAERS Safety Report 5990028-2 (Version None)
Quarter: 2008Q4

REPORT INFORMATION
  Report Type: 
  Country: None (occurrence: None)
  Receive Date: 20081209
  Receipt Date: 20081209
  Transmission Date: 20090506
  Serious: Yes (Hospitalization, Disabling)
  Sender: FDA-Public Use
  Company Number: None

PATIENT
  Age: 13 Year
  Sex: Female
  Weight: 65.7716 kg

DRUGS (1)
  1. LAMOTRIGINE [Suspect]
     Indication: ATTENTION DEFICIT/HYPERACTIVITY DISORDER
     Dosage: 100MG 1 AT BEDTIME PO
     Route: 048
     Dates: start: 20060601, end: 20081104

REACTIONS (9)
  - BLISTER [None]
  - ECZEMA [None]
  - NO THERAPEUTIC RESPONSE [None]
  - PRURITUS [None]
  - RASH [None]
  - RASH MACULAR [None]
  - SCAR [None]
  - SCRATCH [None]
  - SKIN EXFOLIATION [None]
